FAERS Safety Report 10506153 (Version 3)
Quarter: 2014Q4

REPORT INFORMATION
  Report Type: Report from Study
  Country: US (occurrence: US)
  Receive Date: 20141009
  Receipt Date: 20141127
  Transmission Date: 20150528
  Serious: Yes (Death, Hospitalization, Other)
  Sender: FDA-Public Use
  Company Number: US-AMGEN-USASL2014077057

PATIENT
  Age: 79 Year
  Sex: Male
  Weight: 76.64 kg

DRUGS (1)
  1. PROCRIT [Suspect]
     Active Substance: ERYTHROPOIETIN
     Indication: PRODUCT USED FOR UNKNOWN INDICATION
     Dosage: 40000 UNIT, QWK
     Route: 058

REACTIONS (9)
  - Death [Fatal]
  - Asthenia [Unknown]
  - Acute kidney injury [Unknown]
  - Appetite disorder [Unknown]
  - Failure to thrive [Unknown]
  - Dehydration [Unknown]
  - Large intestinal obstruction [Unknown]
  - Colorectal cancer metastatic [Unknown]
  - Ascites [Unknown]

NARRATIVE: CASE EVENT DATE: 20141001
